FAERS Safety Report 4745280-8 (Version None)
Quarter: 2005Q3

REPORT INFORMATION
  Report Type: 
  Country: None (occurrence: None)
  Receive Date: 20050812
  Receipt Date: 20050803
  Transmission Date: 20060218
  Serious: Yes (Hospitalization)
  Sender: FDA-Public Use
  Company Number: 2005104160

PATIENT
  Age: 10 Year
  Sex: Male
  Weight: 40 kg

DRUGS (1)
  1. MEDROL [Suspect]
     Indication: ASTHMA
     Dosage: 4 MG (4 MG, 1 IN 1 D), ORAL
     Route: 048
     Dates: start: 20050701, end: 20050701

REACTIONS (2)
  - ASTHMA [None]
  - RED BLOOD CELL SEDIMENTATION RATE INCREASED [None]
